FAERS Safety Report 6491443-3 (Version None)
Quarter: 2009Q4

REPORT INFORMATION
  Report Type: 
  Country: None (occurrence: None)
  Receive Date: 20091211
  Receipt Date: 20091201
  Transmission Date: 20100525
  Serious: Yes (Hospitalization)
  Sender: FDA-Public Use
  Company Number: JP-ABBOTT-09P-087-0599230-00

PATIENT
  Sex: Male

DRUGS (7)
  1. LEUPLIN SR FOR INJECTION 11.25 MG [Suspect]
     Indication: PROSTATE CANCER STAGE IV
     Route: 058
     Dates: start: 20071003
  2. FLUTAMIDE [Concomitant]
     Indication: PROSTATE CANCER STAGE IV
     Route: 048
  3. OMEPRAL [Concomitant]
     Indication: REFLUX OESOPHAGITIS
     Route: 048
  4. METHYCOBAL [Concomitant]
     Indication: ANAEMIA
     Route: 048
  5. NEUER [Concomitant]
     Indication: GASTRITIS
     Route: 048
  6. VESICARE [Concomitant]
     Indication: HYPERTONIC BLADDER
     Route: 048
  7. SPIROPENT [Concomitant]
     Indication: URINARY INCONTINENCE
     Route: 048

REACTIONS (1)
  - BLADDER CANCER [None]
